FAERS Safety Report 25753461 (Version 1)
Quarter: 2025Q3

REPORT INFORMATION
  Report Type: Spontaneous
  Country: EU (occurrence: EU)
  Receive Date: 20250903
  Receipt Date: 20250903
  Transmission Date: 20251021
  Serious: Yes (Hospitalization)
  Sender: CHEPLAPHARM
  Company Number: None

PATIENT
  Age: 53 Year
  Sex: Female

DRUGS (9)
  1. QUETIAPINE [Suspect]
     Active Substance: QUETIAPINE
     Dosage: 200 MG 1 TABLET AT 8 PM, 50 MG 1 TABLET AT 8 AM?DAILY DOSE: 200 MILLIGRAM
     Route: 048
     Dates: start: 2025
  2. QUETIAPINE [Suspect]
     Active Substance: QUETIAPINE
     Dosage: 200 MG 1 TABLET AT 8 PM, 50 MG 1 TABLET AT 8 AM?DAILY DOSE: 50 MILLIGRAM
     Route: 048
     Dates: start: 2025
  3. CLONAZEPAM [Suspect]
     Active Substance: CLONAZEPAM
     Route: 048
  4. LITHIUM CARBONATE [Suspect]
     Active Substance: LITHIUM CARBONATE
     Dosage: 300 MG AT 8:20 AM?DAILY DOSE: 300 MILLIGRAM
     Route: 048
  5. PAROXETINE [Suspect]
     Active Substance: PAROXETINE
     Dosage: 20 MG 1/2 TABLET PER DAY?DAILY DOSE: 0.5 DOSAGE FORM
     Route: 048
  6. VALPROATE SODIUM [Suspect]
     Active Substance: VALPROATE SODIUM
     Dosage: 500 MG 2 TABLETS PER DAY AT 8 PM?DAILY DOSE: 1000 MILLIGRAM
     Route: 048
  7. GABAPENTIN [Suspect]
     Active Substance: GABAPENTIN
     Dosage: 300 MG 2 TABLETS PER DAY?DAILY DOSE: 600 MILLIGRAM
     Route: 048
  8. TRAZODONE HYDROCHLORIDE [Suspect]
     Active Substance: TRAZODONE HYDROCHLORIDE
     Dosage: 75 MG 1 TABLET AT 8 PM?DAILY DOSE: 75 MILLIGRAM
     Route: 048
  9. FLURAZEPAM MONOHYDROCHLORIDE [Suspect]
     Active Substance: FLURAZEPAM MONOHYDROCHLORIDE
     Dosage: 30 MG 1 TABLET AT 8 PM?DAILY DOSE: 30 MILLIGRAM
     Route: 048

REACTIONS (4)
  - Asthenia [Recovering/Resolving]
  - Decreased appetite [Recovering/Resolving]
  - Dysstasia [Recovering/Resolving]
  - Parkinsonism [Recovering/Resolving]
